FAERS Safety Report 4608103-3 (Version None)
Quarter: 2005Q2

REPORT INFORMATION
  Report Type: 
  Country: None (occurrence: None)
  Receive Date: 20050303
  Receipt Date: 20041115
  Transmission Date: 20051028
  Serious: No
  Sender: FDA-Public Use
  Company Number: 209402

PATIENT
  Age: 35 Year
  Sex: Female
  Weight: 76.6 kg

DRUGS (25)
  1. XOLAIR [Suspect]
     Indication: ASTHMA
     Dosage: 300 MG, Q2W, SUBCUTANEOUS
     Route: 058
     Dates: start: 20040401
  2. PREVACID [Concomitant]
  3. POTASSIUM (POTASSIUM NOS) [Concomitant]
  4. HYDROCHLOROTHIAZIDE [Concomitant]
  5. LISINOPRIL [Concomitant]
  6. ALLEGRA (FEXOFENADINE HYDRCHLORIDE) [Concomitant]
  7. MEDROL [Concomitant]
  8. UNIPHYL [Concomitant]
  9. LAMISIL [Concomitant]
  10. ADVAIR (SALMETEROL XINAFOATE, FLUTICASONE PROPIONATE) [Concomitant]
  11. CALCIUM (CALCIUM) [Concomitant]
  12. RHINOCORT [Concomitant]
  13. ALBUTEROL INHALER (ALBUTEROL, ALBUTEROL SULFATE) [Concomitant]
  14. ALBUTEROL NEBULIZER (ALBUTEROL SULFATE, ALBUTEROL) [Concomitant]
  15. EPIPEN (EPINEPHRINE) [Concomitant]
  16. IVIG (GLOBULIN, IMMUNE) [Concomitant]
  17. EFUDEX [Concomitant]
  18. TAZORAC (TAZAROTENE) [Concomitant]
  19. DUOFILM (LACTIC ACID, SALICYLIC ACID) [Concomitant]
  20. SPORANOX [Concomitant]
  21. OMNICEF [Concomitant]
  22. AREDIA [Concomitant]
  23. CIPRO [Concomitant]
  24. TRIAMCINOLONE CREAM (TRIAMCINOLONE ACETATE) [Concomitant]
  25. SILVER SULFADIAZINE CREAM (SILVER SULFADIAZINE) [Concomitant]

REACTIONS (3)
  - CHEST DISCOMFORT [None]
  - PRURITUS [None]
  - VOMITING [None]
